FAERS Safety Report 19756838 (Version 1)
Quarter: 2021Q3

REPORT INFORMATION
  Report Type: Spontaneous
  Country: PL (occurrence: PL)
  Receive Date: 20210827
  Receipt Date: 20210827
  Transmission Date: 20211014
  Serious: Yes (Other)
  Sender: FDA-Public Use
  Company Number: PL-MYLANLABS-2021M1055317

PATIENT

DRUGS (3)
  1. DEXAMETHASONE. [Suspect]
     Active Substance: DEXAMETHASONE
     Indication: HODGKIN^S DISEASE RECURRENT
     Dosage: 40 MILLIGRAM, Q28D (40 MG, EVERY 4 WEEKS FROM DAYS 1?4)
     Route: 065
  2. BENDAMUSTINE HYDROCHLORIDE. [Suspect]
     Active Substance: BENDAMUSTINE HYDROCHLORIDE
     Indication: HODGKIN^S DISEASE RECURRENT
     Dosage: 90 MILLIGRAM/SQ. METER, Q28D (EVERY 4 WEEKS (ON DAY 1 AND 2) FOR 60 MINS)
     Route: 042
  3. GEMCITABINE. [Suspect]
     Active Substance: GEMCITABINE
     Indication: HODGKIN^S DISEASE RECURRENT
     Dosage: 800 MILLIGRAM/SQ. METER, Q28D (EVERY 4 WEEKS ON DAYS 1 AND 4 FOR 30 MINS)
     Route: 042

REACTIONS (2)
  - Neutropenia [Unknown]
  - Product use in unapproved indication [Unknown]
